FAERS Safety Report 8613006-3 (Version None)
Quarter: 2012Q3

REPORT INFORMATION
  Report Type: 
  Country: None (occurrence: None)
  Receive Date: 20120822
  Receipt Date: 20120809
  Transmission Date: 20120928
  Serious: Yes (Hospitalization)
  Sender: FDA-Public Use
  Company Number: JP-VERTEX PHARMACEUTICAL INC.-2012-019678

PATIENT
  Age: 59 Year
  Sex: Female

DRUGS (6)
  1. RIBAVIRIN [Concomitant]
     Indication: HEPATITIS C
     Dosage: 200 MG, QD
     Route: 048
     Dates: start: 20120619
  2. VX-950 [Suspect]
     Indication: HEPATITIS C
     Dosage: 2250 MG, QD
     Route: 048
     Dates: start: 20120619, end: 20120703
  3. PEGINTERFERON ALFA-2B [Concomitant]
     Dosage: 0.8 A?G/KG, UNK
     Route: 058
     Dates: start: 20120730
  4. VX-950 [Suspect]
     Dosage: 1500MG,QD
     Route: 048
     Dates: start: 20120704, end: 20120720
  5. PEGINTERFERON ALFA-2B [Concomitant]
     Indication: HEPATITIS C
     Dosage: 1 A?G/KG, UNK
     Route: 058
     Dates: start: 20120619, end: 20120723
  6. VX-950 [Suspect]
     Dosage: 750 MG, QD
     Route: 048
     Dates: start: 20120721

REACTIONS (2)
  - PLATELET COUNT DECREASED [None]
  - HAEMOLYTIC ANAEMIA [None]
